FAERS Safety Report 7811056-8 (Version None)
Quarter: 2011Q4

REPORT INFORMATION
  Report Type: 
  Country: None (occurrence: None)
  Receive Date: 20111013
  Receipt Date: 20110929
  Transmission Date: 20120403
  Serious: Yes (Hospitalization, Other)
  Sender: FDA-Public Use
  Company Number: US-BAYER-2011-032376

PATIENT
  Age: 18 Year
  Sex: Female
  Weight: 84 kg

DRUGS (4)
  1. YASMIN [Suspect]
     Indication: CONTRACEPTION
     Dosage: UNK, QD
     Route: 048
     Dates: start: 20030301, end: 20101101
  2. YASMIN [Suspect]
     Dosage: UNK
     Dates: start: 20030301, end: 20101101
  3. ADIPEX [Concomitant]
     Dosage: UNK
     Route: 048
     Dates: start: 20030101, end: 20090101
  4. GLUCOPHAGE [Concomitant]

REACTIONS (3)
  - GALLBLADDER DISORDER [None]
  - CHOLECYSTITIS CHRONIC [None]
  - INJURY [None]
